FAERS Safety Report 14270141 (Version 1)
Quarter: 2017Q4

REPORT INFORMATION
  Report Type: Spontaneous
  Country: US (occurrence: US)
  Receive Date: 20171211
  Receipt Date: 20171211
  Transmission Date: 20180321
  Serious: Yes (Other)
  Sender: FDA-Public Use
  Company Number: US-OTSUKA-DJ20091053

PATIENT

DRUGS (5)
  1. ABILIFY [Suspect]
     Active Substance: ARIPIPRAZOLE
     Route: 048
  2. LITHIUM. [Suspect]
     Active Substance: LITHIUM
     Route: 065
  3. SEROQUEL [Suspect]
     Active Substance: QUETIAPINE FUMARATE
     Route: 065
  4. LITHIUM. [Suspect]
     Active Substance: LITHIUM
  5. QUETIAPINE. [Suspect]
     Active Substance: QUETIAPINE

REACTIONS (1)
  - Electrocardiogram QT prolonged [Unknown]
